FAERS Safety Report 8000397-X (Version None)
Quarter: 2011Q4

REPORT INFORMATION
  Report Type: 
  Country: None (occurrence: None)
  Receive Date: 20111216
  Receipt Date: 20111209
  Transmission Date: 20120403
  Serious: Yes (Death, Other)
  Sender: FDA-Public Use
  Company Number: 2010MA002609

PATIENT
  Age: 49 Year
  Sex: Female

DRUGS (6)
  1. TEMAZEPAM CLOZARIL [Concomitant]
  2. CLOZARIL [Suspect]
     Indication: SCHIZOPHRENIA
     Dosage: 600 MG;QD;PO
     Route: 048
     Dates: start: 20030101
  3. PAROXETINE TABLETS 30MG (AELLC) [Concomitant]
  4. RAMIPRIL [Suspect]
     Indication: HYPERTENSION
     Dosage: 10 MG;
  5. AMISULPRIDE (AMISULPRIDE) [Suspect]
     Indication: SCHIZOPHRENIA
     Dosage: 200 MG; ;PO
     Route: 048
     Dates: start: 20100801
  6. LAMOTRIGINE [Suspect]
     Indication: CONVULSION
     Dosage: 50 MG;
     Dates: start: 20100801

REACTIONS (8)
  - PLATELET COUNT DECREASED [None]
  - HAEMOGLOBIN DECREASED [None]
  - BREAST CANCER FEMALE [None]
  - WHITE BLOOD CELL COUNT INCREASED [None]
  - NEUTROPHIL COUNT INCREASED [None]
  - MENTAL IMPAIRMENT [None]
  - NEUTROPHIL COUNT DECREASED [None]
  - METASTASES TO SPINE [None]
